FAERS Safety Report 6532513-0 (Version None)
Quarter: 2010Q1

REPORT INFORMATION
  Report Type: 
  Country: None (occurrence: None)
  Receive Date: 20100111
  Receipt Date: 20091230
  Transmission Date: 20100710
  Serious: Yes (Hospitalization)
  Sender: FDA-Public Use
  Company Number: JP-B.I. PHARMACEUTICALS,INC./RIDGEFIELD-2009-DE-07252GD

PATIENT
  Age: 68 Year
  Sex: Female

DRUGS (4)
  1. PRAMIPEXOLE DIHYDROCHLORIDE [Suspect]
     Indication: PARKINSON'S DISEASE
     Dosage: 3 MG
  2. PERGOLIDE [Suspect]
     Indication: PARKINSON'S DISEASE
     Dosage: 750 MCG
  3. LEVODOPA/BENSERAZIDE [Concomitant]
     Indication: PARKINSON'S DISEASE
     Dosage: 300 MG
  4. ENTACAPONE [Concomitant]
     Indication: PARKINSON'S DISEASE
     Dosage: 300 MG

REACTIONS (1)
  - TORTICOLLIS [None]
